FAERS Safety Report 7487151-2 (Version None)
Quarter: 2011Q2

REPORT INFORMATION
  Report Type: 
  Country: None (occurrence: None)
  Receive Date: 20110510
  Receipt Date: 20110425
  Transmission Date: 20111010
  Serious: Yes (Disabling, Other)
  Sender: FDA-Public Use
  Company Number: 2010AL000453

PATIENT
  Sex: Female
  Weight: 66.6788 kg

DRUGS (22)
  1. TAMOXIFEN CITRATE [Concomitant]
  2. COMBIVENT [Concomitant]
  3. ZYRTEC [Concomitant]
  4. NEURONTIN [Concomitant]
  5. SERZONE [Concomitant]
  6. ACTONEL [Concomitant]
  7. CALCIUM CARBONATE [Concomitant]
  8. VAGIFEM [Concomitant]
  9. CELEBREX [Concomitant]
  10. AMITRIPTYLINE HCL [Concomitant]
  11. RESPIRIDONE [Concomitant]
  12. PROZAC [Concomitant]
  13. WELLBUTRIN [Concomitant]
  14. FLONASE [Concomitant]
  15. SINGULAIR [Concomitant]
  16. ZANTAC [Concomitant]
  17. BENTYL [Concomitant]
  18. METOCLOPRAMIDE [Suspect]
     Indication: ABDOMINAL DISCOMFORT
     Dates: start: 20000101, end: 20071001
  19. SYNTHROID [Concomitant]
  20. VALIUM [Concomitant]
  21. PRILOSEC [Concomitant]
  22. DICYCLOMINE [Concomitant]

REACTIONS (7)
  - ACTIVITIES OF DAILY LIVING IMPAIRED [None]
  - SOMNOLENCE [None]
  - IMPAIRED WORK ABILITY [None]
  - PAIN [None]
  - CHOREA [None]
  - TARDIVE DYSKINESIA [None]
  - ABDOMINAL DISTENSION [None]
